FAERS Safety Report 26088043 (Version 2)
Quarter: 2025Q4

REPORT INFORMATION
  Report Type: Spontaneous
  Country: AU (occurrence: AU)
  Receive Date: 20251125
  Receipt Date: 20251203
  Transmission Date: 20260118
  Serious: Yes (Life-Threatening, Hospitalization)
  Sender: BAUSCH AND LOMB
  Company Number: AU-BAUSCH-BH-2025-020732

PATIENT
  Age: 58 Year
  Sex: Female

DRUGS (7)
  1. ALBUTEROL [Suspect]
     Active Substance: ALBUTEROL
     Indication: Hypoxia
     Route: 065
  2. ALBUTEROL [Suspect]
     Active Substance: ALBUTEROL
     Indication: Respiratory distress
     Dosage: NEBULISED
     Route: 065
  3. IPRATROPIUM [Suspect]
     Active Substance: IPRATROPIUM
     Indication: Hypoxia
     Dosage: NEBULISED
     Route: 065
  4. IPRATROPIUM [Suspect]
     Active Substance: IPRATROPIUM
     Indication: Respiratory distress
  5. DEXAMETHASONE [Suspect]
     Active Substance: DEXAMETHASONE
     Indication: Hypoxia
     Route: 048
  6. DEXAMETHASONE [Suspect]
     Active Substance: DEXAMETHASONE
     Indication: Respiratory distress
  7. BUDESONIDE/EFORMOTEROL [Concomitant]
     Indication: Asthma

REACTIONS (3)
  - Anaphylactic reaction [Unknown]
  - Bronchospasm paradoxical [Unknown]
  - Treatment failure [Unknown]
